FAERS Safety Report 5748595-X (Version None)
Quarter: 2008Q2

REPORT INFORMATION
  Report Type: 
  Country: None (occurrence: None)
  Receive Date: 20080523
  Receipt Date: 20080514
  Transmission Date: 20081010
  Serious: Yes (Other)
  Sender: FDA-Public Use
  Company Number: FI-PFIZER INC-2008042538

PATIENT
  Sex: Female

DRUGS (5)
  1. LYRICA [Suspect]
     Dosage: DAILY DOSE:225MG
     Route: 048
  2. TENOX [Interacting]
     Route: 048
     Dates: start: 20080513, end: 20080513
  3. EFFEXOR [Concomitant]
     Route: 048
  4. PANACOD [Concomitant]
  5. ZOPINOX [Concomitant]
     Route: 048

REACTIONS (2)
  - DRUG INTERACTION [None]
  - RESPIRATORY DEPRESSION [None]
